FAERS Safety Report 8535829-1 (Version None)
Quarter: 2012Q3

REPORT INFORMATION
  Report Type: 
  Country: None (occurrence: None)
  Receive Date: 20120718
  Receipt Date: 20120718
  Transmission Date: 20120928
  Serious: Yes (Hospitalization, Disabling)
  Sender: FDA-Public Use
  Company Number: None

PATIENT
  Age: 89 Year
  Sex: Female

DRUGS (9)
  1. ASPIRIN [Concomitant]
  2. M.V.I. [Concomitant]
  3. RAMIPRIL [Concomitant]
  4. JANUVIA [Concomitant]
  5. ZETIA [Concomitant]
  6. BRILINTA [Suspect]
  7. CLOPIDOGREL [Concomitant]
  8. PEPCID [Concomitant]
  9. METOPROLOL TARTRATE [Concomitant]

REACTIONS (3)
  - VENTRICULAR ARRHYTHMIA [None]
  - ATRIOVENTRICULAR BLOCK COMPLETE [None]
  - CARDIO-RESPIRATORY ARREST [None]
